FAERS Safety Report 22108782 (Version 1)
Quarter: 2023Q1

REPORT INFORMATION
  Report Type: Spontaneous
  Country: ES (occurrence: ES)
  Receive Date: 20230317
  Receipt Date: 20230317
  Transmission Date: 20230418
  Serious: Yes (Hospitalization)
  Sender: FDA-Public Use
  Company Number: None

PATIENT
  Age: 63 Year
  Sex: Male
  Weight: 74.6 kg

DRUGS (4)
  1. FUROSEMIDE [Interacting]
     Active Substance: FUROSEMIDE
     Indication: Ascites
     Dosage: 40 MILLIGRAM, QD, 30 TABLETS
     Route: 048
     Dates: start: 20211015, end: 20221220
  2. FUROSEMIDE [Interacting]
     Active Substance: FUROSEMIDE
     Dosage: 2-1-0 DOSE INCREASE 21/12/2022
     Route: 048
     Dates: start: 20221221, end: 20230208
  3. SPIRONOLACTONE [Interacting]
     Active Substance: SPIRONOLACTONE
     Indication: Ascites
     Dosage: 100 MILLIGRAM, QD
     Route: 048
     Dates: start: 20220215, end: 20221220
  4. SPIRONOLACTONE [Interacting]
     Active Substance: SPIRONOLACTONE
     Dosage: 1-1-0 (DOSE INCREASE 21/12/2022)
     Route: 048
     Dates: start: 20221221, end: 20230208

REACTIONS (3)
  - Acute kidney injury [Recovered/Resolved]
  - Hyponatraemia [Recovering/Resolving]
  - Drug interaction [Unknown]

NARRATIVE: CASE EVENT DATE: 20230202
